FAERS Safety Report 9615129 (Version 1)
Quarter: 2013Q4

REPORT INFORMATION
  Report Type: Spontaneous
  Country: US (occurrence: US)
  Receive Date: 20131011
  Receipt Date: 20131011
  Transmission Date: 20140711
  Serious: No
  Sender: FDA-Public Use
  Company Number: US-PURDUE-USA-2013-0097758

PATIENT
  Age: 20 Year
  Sex: Female
  Weight: 57.14 kg

DRUGS (2)
  1. BUTRANS [Suspect]
     Indication: PAIN
     Dosage: 20 MCG, WEEKLY
     Route: 062
     Dates: start: 20120614
  2. TRAMADOL (SIMILAR TO NDA 21-745) [Concomitant]
     Indication: PAIN
     Dosage: 50 MG, 1-2 TABS
     Route: 048

REACTIONS (3)
  - Application site pruritus [Not Recovered/Not Resolved]
  - Application site erythema [Not Recovered/Not Resolved]
  - Application site rash [Not Recovered/Not Resolved]
